FAERS Safety Report 9538407 (Version 3)
Quarter: 2014Q1

REPORT INFORMATION
  Report Type: Spontaneous
  Country: US (occurrence: US)
  Receive Date: 20130920
  Receipt Date: 20140131
  Transmission Date: 20141002
  Serious: No
  Sender: FDA-Public Use
  Company Number: US-PFIZER INC-2013266684

PATIENT
  Age: 42 Year
  Sex: Female
  Weight: 74.38 kg

DRUGS (5)
  1. GEODON [Suspect]
     Indication: BIPOLAR DISORDER
     Dosage: 20 MG, DAILY
     Dates: start: 201309
  2. CYMBALTA [Concomitant]
     Indication: BIPOLAR DISORDER
     Dosage: UNK (60 MG IN MORNING AND 30 MG IN THE AFTERNOON), TWO TIMES A DAY
  3. LAMICTAL [Concomitant]
     Indication: BIPOLAR DISORDER
     Dosage: 150 MG, TWO TIMES A DAY
  4. LAMICTAL [Concomitant]
     Indication: MOOD ALTERED
  5. LISINOPRIL [Concomitant]
     Indication: HYPERTENSION
     Dosage: 5 MG, UNK

REACTIONS (4)
  - Pre-existing condition improved [Unknown]
  - Therapeutic response unexpected [Unknown]
  - Elevated mood [Unknown]
  - Weight decreased [Unknown]
